FAERS Safety Report 23079225 (Version 4)
Quarter: 2024Q2

REPORT INFORMATION
  Report Type: Spontaneous
  Country: US (occurrence: US)
  Receive Date: 20231018
  Receipt Date: 20240620
  Transmission Date: 20240715
  Serious: Yes (Other)
  Sender: FDA-Public Use
  Company Number: US-PFIZER INC-PV202300170168

PATIENT
  Age: 66 Year
  Sex: Female
  Weight: 54.422 kg

DRUGS (1)
  1. NICOTROL [Suspect]
     Active Substance: NICOTINE
     Indication: Smoking cessation therapy
     Dosage: UNK
     Route: 045
     Dates: start: 2017

REACTIONS (2)
  - Lung neoplasm malignant [Unknown]
  - Drug dependence [Unknown]
